FAERS Safety Report 4435617-1 (Version None)
Quarter: 2004Q3

REPORT INFORMATION
  Report Type: 
  Country: None (occurrence: None)
  Receive Date: 20040726
  Receipt Date: 20040503
  Transmission Date: 20050211
  Serious: No
  Sender: FDA-Public Use
  Company Number: USA040566599

PATIENT
  Age: 38 Year
  Sex: Female

DRUGS (1)
  1. FORTEO [Suspect]
     Indication: BONE DISORDER
     Dates: start: 20040415

REACTIONS (3)
  - INJECTION SITE BURNING [None]
  - INJECTION SITE ERYTHEMA [None]
  - INJECTION SITE RASH [None]
